FAERS Safety Report 5997549-7 (Version None)
Quarter: 2008Q4

REPORT INFORMATION
  Report Type: 
  Country: None (occurrence: None)
  Receive Date: 20081212
  Receipt Date: 20081114
  Transmission Date: 20090506
  Serious: No
  Sender: FDA-Public Use
  Company Number: US-ABBOTT-08P-163-0487951-00

PATIENT
  Sex: Female
  Weight: 51.756 kg

DRUGS (1)
  1. HUMIRA [Suspect]
     Indication: RHEUMATOID ARTHRITIS
     Route: 058
     Dates: start: 20030101

REACTIONS (8)
  - ARTHROPOD STING [None]
  - FEELING HOT [None]
  - LOCAL SWELLING [None]
  - NASOPHARYNGITIS [None]
  - OROPHARYNGEAL PAIN [None]
  - PAIN [None]
  - PRURITUS [None]
  - SNEEZING [None]
